FAERS Safety Report 6667775-2 (Version None)
Quarter: 2010Q2

REPORT INFORMATION
  Report Type: 
  Country: None (occurrence: None)
  Receive Date: 20100405
  Receipt Date: 20100325
  Transmission Date: 20101027
  Serious: Yes (Hospitalization)
  Sender: FDA-Public Use
  Company Number: US-JNJFOC-20100201165

PATIENT
  Age: 68 Year
  Sex: Female
  Weight: 57.15 kg

DRUGS (2)
  1. EXTRA STRENGTH TYLENOL [Suspect]
     Route: 048
  2. EXTRA STRENGTH TYLENOL [Suspect]
     Indication: MIGRAINE
     Route: 048

REACTIONS (3)
  - DIARRHOEA [None]
  - PRODUCT ODOUR ABNORMAL [None]
  - WEIGHT DECREASED [None]
